FAERS Safety Report 8829193 (Version 1)
Quarter: 2012Q4

REPORT INFORMATION
  Report Type: 
  Country: US (occurrence: US)
  Receive Date: 20121009
  Receipt Date: 20121009
  Transmission Date: 20130627
  Serious: No
  Sender: FDA-Public Use
  Company Number: US-009507513-1210USA000381

PATIENT
  Sex: Female

DRUGS (2)
  1. IMPLANON [Suspect]
     Dosage: UNK
     Route: 059
     Dates: start: 20120904
  2. IMPLANON [Suspect]
     Dosage: UNK
     Dates: end: 20120904

REACTIONS (2)
  - Medical device complication [Unknown]
  - No adverse event [Unknown]
